FAERS Safety Report 24363093 (Version 4)
Quarter: 2025Q1

REPORT INFORMATION
  Report Type: Spontaneous
  Country: US (occurrence: US)
  Receive Date: 20240925
  Receipt Date: 20250311
  Transmission Date: 20250409
  Serious: No
  Sender: SUNOVION
  Company Number: US-SMPA-2024SPA002990AA

PATIENT

DRUGS (11)
  1. ORGOVYX [Suspect]
     Active Substance: RELUGOLIX
     Indication: Prostate cancer
     Dosage: 360 MG, SINGLE
     Route: 048
     Dates: start: 202408, end: 202408
  2. ORGOVYX [Suspect]
     Active Substance: RELUGOLIX
     Dosage: 120 MG, QD
     Route: 048
     Dates: start: 202408
  3. AZELASTINE HYDROCHLORIDE\FLUTICASONE PROPIONATE [Concomitant]
     Active Substance: AZELASTINE HYDROCHLORIDE\FLUTICASONE PROPIONATE
     Route: 045
  4. FAMOTIDINE [Concomitant]
     Active Substance: FAMOTIDINE
     Route: 065
  5. FLOMAX [Concomitant]
     Active Substance: TAMSULOSIN HYDROCHLORIDE
     Route: 065
  6. GLIPIZIDE [Concomitant]
     Active Substance: GLIPIZIDE
     Route: 065
  7. MYRBETRIQ [Concomitant]
     Active Substance: MIRABEGRON
     Route: 065
  8. NEBIVOLOL [Concomitant]
     Active Substance: NEBIVOLOL
     Route: 065
  9. SILDENAFIL CITRATE [Concomitant]
     Active Substance: SILDENAFIL CITRATE
     Route: 065
  10. VITAMIN E [Concomitant]
     Active Substance: .ALPHA.-TOCOPHEROL
     Route: 065
  11. VITAMIN D3 [Concomitant]
     Active Substance: CHOLECALCIFEROL
     Route: 065

REACTIONS (4)
  - Somnolence [Unknown]
  - Diarrhoea [Recovered/Resolved]
  - Hot flush [Unknown]
  - Product dose omission in error [Unknown]

NARRATIVE: CASE EVENT DATE: 20241111
